FAERS Safety Report 24195038 (Version 1)
Quarter: 2024Q3

REPORT INFORMATION
  Report Type: Spontaneous
  Country: US (occurrence: US)
  Receive Date: 20240809
  Receipt Date: 20240809
  Transmission Date: 20241016
  Serious: Yes (Hospitalization, Other)
  Sender: MEITHEAL PHARMACEUTICALS
  Company Number: US-MEITHEAL-2024MPLIT00237

PATIENT
  Age: 30 Year
  Sex: Female

DRUGS (1)
  1. NELARABINE [Suspect]
     Active Substance: NELARABINE
     Indication: Precursor T-lymphoblastic lymphoma/leukaemia
     Route: 065

REACTIONS (2)
  - Respiratory failure [Recovering/Resolving]
  - Guillain-Barre syndrome [Recovering/Resolving]
